FAERS Safety Report 17004343 (Version 2)
Quarter: 2019Q4

REPORT INFORMATION
  Report Type: Spontaneous
  Country: US (occurrence: US)
  Receive Date: 20191107
  Receipt Date: 20191118
  Transmission Date: 20200122
  Serious: Yes (Life-Threatening, Hospitalization, Other)
  Sender: FDA-Public Use
  Company Number: US-VELOXIS PHARMACEUTICALS-2019VELUS-000637

PATIENT
  Age: 63 Year
  Sex: Female

DRUGS (6)
  1. LINEZOLID. [Suspect]
     Active Substance: LINEZOLID
     Indication: PERINEPHRIC COLLECTION
  2. LINEZOLID. [Suspect]
     Active Substance: LINEZOLID
     Indication: ANTIBIOTIC THERAPY
     Dosage: UNK
     Route: 065
  3. MYCOPHENOLATE [Concomitant]
     Active Substance: MYCOPHENOLIC ACID
     Indication: PROPHYLAXIS AGAINST TRANSPLANT REJECTION
     Dosage: UNK
     Route: 065
  4. PREDNISONE. [Concomitant]
     Active Substance: PREDNISONE
     Indication: PROPHYLAXIS AGAINST TRANSPLANT REJECTION
     Dosage: UNK
     Route: 065
  5. PIPERACILLIN AND TAZOBACTAM [Concomitant]
     Active Substance: PIPERACILLIN SODIUM\TAZOBACTAM SODIUM
     Indication: PERINEPHRIC COLLECTION
     Dosage: UNK
     Route: 065
  6. ENVARSUS XR [Suspect]
     Active Substance: TACROLIMUS
     Indication: PROPHYLAXIS AGAINST TRANSPLANT REJECTION
     Dosage: UNK
     Route: 065

REACTIONS (9)
  - Normochromic anaemia [Unknown]
  - Vomiting [Unknown]
  - Blood urea increased [Unknown]
  - Thrombocytopenia [Unknown]
  - Posterior reversible encephalopathy syndrome [Recovered/Resolved]
  - Blood pressure increased [Unknown]
  - Nausea [Unknown]
  - Diarrhoea [Unknown]
  - Blood creatinine increased [Unknown]
